FAERS Safety Report 5513822-0 (Version None)
Quarter: 2007Q4

REPORT INFORMATION
  Report Type: 
  Country: None (occurrence: None)
  Receive Date: 20071113
  Receipt Date: 20071102
  Transmission Date: 20080405
  Serious: Yes (Life-Threatening, Hospitalization, Other)
  Sender: FDA-Public Use
  Company Number: FR-ELI_LILLY_AND_COMPANY-FR200710006166

PATIENT
  Sex: Female

DRUGS (4)
  1. ZYPREXA [Suspect]
     Indication: SCHIZOAFFECTIVE DISORDER
     Dosage: 10 MG, DAILY (1/D)
     Route: 048
     Dates: start: 20011001, end: 20020128
  2. TERALITHE [Concomitant]
     Indication: SCHIZOAFFECTIVE DISORDER
     Dosage: UNK, UNK
     Route: 048
     Dates: start: 20011001, end: 20020128
  3. DEPAKENE [Concomitant]
     Indication: SCHIZOAFFECTIVE DISORDER
     Dosage: 500 MG, 2/D
     Route: 048
     Dates: start: 20011001
  4. MINIPHASE [Concomitant]
     Indication: CONTRACEPTION
     Route: 048

REACTIONS (6)
  - COOMBS NEGATIVE HAEMOLYTIC ANAEMIA [None]
  - GASTROINTESTINAL NECROSIS [None]
  - INTESTINAL INFARCTION [None]
  - LEUKOCYTOSIS [None]
  - STAPHYLOCOCCAL SEPSIS [None]
  - THROMBOCYTHAEMIA [None]
